FAERS Safety Report 5256779-2 (Version None)
Quarter: 2007Q1

REPORT INFORMATION
  Report Type: 
  Country: None (occurrence: None)
  Receive Date: 20061219
  Receipt Date: 20061027
  Transmission Date: 20070707
  Serious: No
  Sender: FDA-Public Use
  Company Number: 2006US001863

PATIENT
  Age: 70 Year
  Sex: Male

DRUGS (2)
  1. WESICARE (SOLIFENACIN) TABLET, 5MG [Suspect]
     Indication: DRUG USE FOR UNKNOWN INDICATION
     Dosage: 5 MG, ORAL
     Route: 048
  2. CARDURA [Concomitant]

REACTIONS (1)
  - BLOOD PRESSURE INCREASED [None]
